FAERS Safety Report 21943161 (Version 2)
Quarter: 2023Q1

REPORT INFORMATION
  Report Type: Spontaneous
  Country: US (occurrence: US)
  Receive Date: 20230202
  Receipt Date: 20230214
  Transmission Date: 20230417
  Serious: No
  Sender: FDA-Public Use
  Company Number: US-TEVA-2023-US-2850379

PATIENT
  Age: 22 Year
  Sex: Male

DRUGS (3)
  1. AUSTEDO [Suspect]
     Active Substance: DEUTETRABENAZINE
     Indication: Stereotypy
     Dosage: 24 MILLIGRAM DAILY;
     Route: 065
     Dates: start: 20220701
  2. AUSTEDO [Suspect]
     Active Substance: DEUTETRABENAZINE
     Indication: Intentional self-injury
     Route: 065
     Dates: start: 201907
  3. AUSTEDO [Suspect]
     Active Substance: DEUTETRABENAZINE
     Indication: Tardive dyskinesia

REACTIONS (2)
  - Drug ineffective [Unknown]
  - Product use in unapproved indication [Unknown]
